FAERS Safety Report 15696701 (Version 1)
Quarter: 2018Q4

REPORT INFORMATION
  Report Type: Spontaneous
  Country: CZ (occurrence: CZ)
  Receive Date: 20181206
  Receipt Date: 20181206
  Transmission Date: 20190205
  Serious: Yes (Hospitalization)
  Sender: FDA-Public Use
  Company Number: CZ-TAKEDA-2018TJP030636

PATIENT
  Age: 69 Year
  Sex: Female
  Weight: 95 kg

DRUGS (5)
  1. PIOGLITAZONE. [Suspect]
     Active Substance: PIOGLITAZONE
     Indication: PRODUCT USED FOR UNKNOWN INDICATION
     Dosage: UNK
     Route: 065
     Dates: start: 2011
  2. METFORMIN [Concomitant]
     Active Substance: METFORMIN HYDROCHLORIDE
     Indication: DIABETES MELLITUS
     Dosage: UNK
     Dates: end: 200611
  3. ROSIGLITAZONE [Concomitant]
     Active Substance: ROSIGLITAZONE
     Indication: DIABETES MELLITUS
     Dosage: UNK
     Dates: end: 200806
  4. THYROXINE [Concomitant]
     Active Substance: LEVOTHYROXINE
     Indication: GOITRE
     Dosage: UNK
  5. GLICLAZIDE [Concomitant]
     Active Substance: GLICLAZIDE
     Dosage: UNK

REACTIONS (2)
  - Weight increased [Unknown]
  - Diabetic metabolic decompensation [Unknown]

NARRATIVE: CASE EVENT DATE: 201502
